FAERS Safety Report 16724999 (Version 1)
Quarter: 2019Q3

REPORT INFORMATION
  Report Type: Spontaneous
  Country: US (occurrence: US)
  Receive Date: 20190821
  Receipt Date: 20190821
  Transmission Date: 20191005
  Serious: Yes (Other)
  Sender: FDA-Public Use
  Company Number: US-SMITH AND NEPHEW, INC-2019SMT00052

PATIENT
  Sex: Female

DRUGS (2)
  1. COLLAGEN [Suspect]
     Active Substance: COLLAGEN
     Indication: LIMB INJURY
     Dosage: UNK
     Route: 061
     Dates: start: 201906
  2. REGRANEX [Suspect]
     Active Substance: BECAPLERMIN
     Indication: LIMB INJURY
     Dosage: UNK
     Route: 061
     Dates: start: 201905

REACTIONS (3)
  - Wound complication [Not Recovered/Not Resolved]
  - Wound infection bacterial [Not Recovered/Not Resolved]
  - Off label use [Not Recovered/Not Resolved]

NARRATIVE: CASE EVENT DATE: 2019
